FAERS Safety Report 8464372-3 (Version None)
Quarter: 2012Q2

REPORT INFORMATION
  Report Type: 
  Country: None (occurrence: None)
  Receive Date: 20120626
  Receipt Date: 20120615
  Transmission Date: 20120825
  Serious: Yes (Other)
  Sender: FDA-Public Use
  Company Number: CO-AMGEN-COLSP2012038116

PATIENT
  Age: 87 Year
  Sex: Female

DRUGS (4)
  1. ASPIRIN [Concomitant]
     Dosage: UNK
  2. MEDROL [Concomitant]
     Dosage: UNK
  3. ENBREL [Suspect]
     Indication: RHEUMATOID ARTHRITIS
     Dosage: 50 MG, WEEKLY
     Route: 058
     Dates: start: 20120601
  4. INFLAXEN [Concomitant]
     Dosage: UNK

REACTIONS (4)
  - FATIGUE [None]
  - ASTHENIA [None]
  - EYE INFECTION [None]
  - IMMUNODEFICIENCY [None]
